FAERS Safety Report 4927846-5 (Version None)
Quarter: 2006Q1

REPORT INFORMATION
  Report Type: 
  Country: None (occurrence: None)
  Receive Date: 20060228
  Receipt Date: 20050727
  Transmission Date: 20060701
  Serious: Yes (Other)
  Sender: FDA-Public Use
  Company Number: US-GLAXOSMITHKLINE-A0567809A

PATIENT
  Age: 46 Year
  Sex: Male
  Weight: 119.5 kg

DRUGS (8)
  1. COREG [Suspect]
     Indication: DRUG USE FOR UNKNOWN INDICATION
     Route: 048
  2. AVANDAMET [Concomitant]
  3. GLUCOTROL XL [Concomitant]
  4. ASPIRIN [Concomitant]
  5. ALDACTAZIDE [Concomitant]
  6. PLAVIX [Concomitant]
  7. MEVACOR [Concomitant]
  8. MAVIK [Concomitant]

REACTIONS (2)
  - AMNESIA [None]
  - MYOCARDIAL INFARCTION [None]
